FAERS Safety Report 8586494 (Version 2)
Quarter: 2015Q4

REPORT INFORMATION
  Report Type: Spontaneous
  Country: US (occurrence: US)
  Receive Date: 20120530
  Receipt Date: 20151118
  Transmission Date: 20160305
  Serious: Yes (Congenital Anomaly, Other)
  Sender: FDA-Public Use
  Company Number: US-GLAXOSMITHKLINE-A0979141A

PATIENT
  Sex: Male

DRUGS (2)
  1. PAXIL [Suspect]
     Active Substance: PAROXETINE HYDROCHLORIDE
     Indication: ANXIETY
     Dosage: 20 MG, U
     Route: 064
     Dates: start: 19940415, end: 20030806
  2. PAXIL CR [Suspect]
     Active Substance: PAROXETINE HYDROCHLORIDE
     Indication: PRODUCT USED FOR UNKNOWN INDICATION
     Dosage: 37.5 MG, U
     Route: 064
     Dates: start: 20030131, end: 20030519

REACTIONS (4)
  - Foetal exposure during pregnancy [Unknown]
  - Congenital aortic valve incompetence [Unknown]
  - Bicuspid aortic valve [Unknown]
  - Atrial septal defect [Unknown]
